FAERS Safety Report 24628259 (Version 2)
Quarter: 2025Q1

REPORT INFORMATION
  Report Type: Report from Study
  Country: JP (occurrence: JP)
  Receive Date: 20241117
  Receipt Date: 20250101
  Transmission Date: 20250409
  Serious: Yes (Other)
  Sender: ALEXION PHARMACEUTICALS
  Company Number: JP-ASTRAZENECA-230067125_013120_P_1

PATIENT
  Age: 65 Year
  Weight: 83 kg

DRUGS (32)
  1. DURVALUMAB [Suspect]
     Active Substance: DURVALUMAB
     Indication: Non-small cell lung cancer
     Dosage: 1500 MILLIGRAM, Q3W
  2. DURVALUMAB [Suspect]
     Active Substance: DURVALUMAB
     Dosage: 1500 MILLIGRAM, Q3W
     Route: 041
  3. DURVALUMAB [Suspect]
     Active Substance: DURVALUMAB
     Dosage: 1500 MILLIGRAM, Q3W
  4. DURVALUMAB [Suspect]
     Active Substance: DURVALUMAB
     Dosage: 1500 MILLIGRAM, Q3W
     Route: 041
  5. DURVALUMAB [Suspect]
     Active Substance: DURVALUMAB
     Dosage: 1500 MILLIGRAM, Q4W
  6. DURVALUMAB [Suspect]
     Active Substance: DURVALUMAB
     Dosage: 1500 MILLIGRAM, Q4W
     Route: 041
  7. DURVALUMAB [Suspect]
     Active Substance: DURVALUMAB
     Dosage: 1500 MILLIGRAM, Q4W
  8. DURVALUMAB [Suspect]
     Active Substance: DURVALUMAB
     Dosage: 1500 MILLIGRAM, Q4W
     Route: 041
  9. TREMELIMUMAB [Suspect]
     Active Substance: TREMELIMUMAB
     Indication: Non-small cell lung cancer
     Dosage: DOSE UNKNOWN
  10. TREMELIMUMAB [Suspect]
     Active Substance: TREMELIMUMAB
     Dosage: DOSE UNKNOWN
     Route: 041
  11. TREMELIMUMAB [Suspect]
     Active Substance: TREMELIMUMAB
     Dosage: DOSE UNKNOWN
  12. TREMELIMUMAB [Suspect]
     Active Substance: TREMELIMUMAB
     Dosage: DOSE UNKNOWN
     Route: 041
  13. CARBOPLATIN [Suspect]
     Active Substance: CARBOPLATIN
     Indication: Non-small cell lung cancer
  14. CARBOPLATIN [Suspect]
     Active Substance: CARBOPLATIN
     Route: 042
  15. CARBOPLATIN [Suspect]
     Active Substance: CARBOPLATIN
  16. CARBOPLATIN [Suspect]
     Active Substance: CARBOPLATIN
     Route: 042
  17. CARBOPLATIN [Suspect]
     Active Substance: CARBOPLATIN
     Route: 065
  18. CARBOPLATIN [Suspect]
     Active Substance: CARBOPLATIN
     Route: 065
  19. CARBOPLATIN [Suspect]
     Active Substance: CARBOPLATIN
     Route: 065
  20. CARBOPLATIN [Suspect]
     Active Substance: CARBOPLATIN
     Route: 065
  21. CARBOPLATIN [Suspect]
     Active Substance: CARBOPLATIN
     Route: 065
  22. CARBOPLATIN [Suspect]
     Active Substance: CARBOPLATIN
     Route: 065
  23. CARBOPLATIN [Suspect]
     Active Substance: CARBOPLATIN
     Route: 065
  24. CARBOPLATIN [Suspect]
     Active Substance: CARBOPLATIN
     Route: 065
  25. PACLITAXEL [Suspect]
     Active Substance: PACLITAXEL
     Indication: Non-small cell lung cancer
  26. PACLITAXEL [Suspect]
     Active Substance: PACLITAXEL
     Route: 042
  27. PACLITAXEL [Suspect]
     Active Substance: PACLITAXEL
  28. PACLITAXEL [Suspect]
     Active Substance: PACLITAXEL
     Route: 042
  29. PACLITAXEL [Suspect]
     Active Substance: PACLITAXEL
  30. PACLITAXEL [Suspect]
     Active Substance: PACLITAXEL
     Route: 042
  31. PACLITAXEL [Suspect]
     Active Substance: PACLITAXEL
  32. PACLITAXEL [Suspect]
     Active Substance: PACLITAXEL
     Route: 042

REACTIONS (5)
  - Neutrophil count decreased [Recovered/Resolved]
  - Decreased appetite [Recovered/Resolved]
  - Aspartate aminotransferase increased [Recovered/Resolved]
  - Alanine aminotransferase increased [Recovered/Resolved]
  - Liver disorder [Unknown]
